FAERS Safety Report 14613566 (Version 1)
Quarter: 2018Q1

REPORT INFORMATION
  Report Type: Spontaneous
  Country: US (occurrence: US)
  Receive Date: 20180308
  Receipt Date: 20180308
  Transmission Date: 20180509
  Serious: Yes (Other)
  Sender: FDA-Public Use
  Company Number: US-MYLANLABS-2018M1014278

PATIENT
  Age: 47 Year
  Sex: Female

DRUGS (2)
  1. SCOPOLAMINE                        /00008701/ [Suspect]
     Active Substance: SCOPOLAMINE
     Indication: DECREASED BRONCHIAL SECRETION
     Dosage: 1.5 MG
     Route: 062
  2. METRONIDAZOLE. [Suspect]
     Active Substance: METRONIDAZOLE
     Indication: SKIN INFECTION
     Dosage: 500 MG EVERY 8 HOURS
     Route: 042

REACTIONS (1)
  - Delirium [Recovered/Resolved]
